FAERS Safety Report 4458046-3 (Version None)
Quarter: 2004Q3

REPORT INFORMATION
  Report Type: 
  Country: None (occurrence: None)
  Receive Date: 20040922
  Receipt Date: 20040906
  Transmission Date: 20050211
  Serious: Yes (Hospitalization)
  Sender: FDA-Public Use
  Company Number: EWC040940513

PATIENT
  Age: 45 Year
  Sex: Male

DRUGS (2)
  1. ZYPREXA [Suspect]
     Dosage: 500 MG
  2. CLOMIPRAMINE HCL [Concomitant]

REACTIONS (8)
  - ABASIA [None]
  - ALCOHOL USE [None]
  - FATIGUE [None]
  - FEELING ABNORMAL [None]
  - HEART RATE INCREASED [None]
  - INTENTIONAL OVERDOSE [None]
  - MIOSIS [None]
  - SUICIDE ATTEMPT [None]
